FAERS Safety Report 24684737 (Version 1)
Quarter: 2024Q4

REPORT INFORMATION
  Report Type: Spontaneous
  Country: US (occurrence: US)
  Receive Date: 20241202
  Receipt Date: 20241202
  Transmission Date: 20250114
  Serious: No
  Sender: BAUSCH AND LOMB
  Company Number: US-BAUSCHBL-2024BNL038085

PATIENT
  Sex: Female

DRUGS (1)
  1. TETRACAINE HYDROCHLORIDE [Suspect]
     Active Substance: TETRACAINE HYDROCHLORIDE
     Indication: Product used for unknown indication
     Route: 047

REACTIONS (2)
  - Eye irritation [Unknown]
  - Skin burning sensation [Unknown]
